FAERS Safety Report 7716389-1 (Version None)
Quarter: 2011Q3

REPORT INFORMATION
  Report Type: 
  Country: None (occurrence: None)
  Receive Date: 20110829
  Receipt Date: 20110822
  Transmission Date: 20111222
  Serious: Yes (Other)
  Sender: FDA-Public Use
  Company Number: BR-MERCK-1108BRA00079

PATIENT
  Age: 57 Year
  Sex: Female
  Weight: 73 kg

DRUGS (4)
  1. DEFLAZACORT [Concomitant]
     Indication: HYPERTENSION
     Route: 048
     Dates: start: 20110101
  2. SINGULAIR [Suspect]
     Indication: HYPERSENSITIVITY
     Route: 048
     Dates: start: 20110815, end: 20110820
  3. HYDROXYZINE HYDROCHLORIDE [Concomitant]
     Indication: ANTIALLERGIC THERAPY
     Route: 048
  4. SIMVASTATIN [Concomitant]
     Indication: BLOOD CHOLESTEROL
     Route: 048
     Dates: start: 20110501

REACTIONS (4)
  - THIRST [None]
  - INJECTION SITE HYPERSENSITIVITY [None]
  - SOMNOLENCE [None]
  - DRY MOUTH [None]
